FAERS Safety Report 6289991-4 (Version None)
Quarter: 2009Q3

REPORT INFORMATION
  Report Type: 
  Country: None (occurrence: None)
  Receive Date: 20090730
  Receipt Date: 20081015
  Transmission Date: 20100115
  Serious: No
  Sender: FDA-Public Use
  Company Number: US-BRISTOL-MYERS SQUIBB COMPANY-14372767

PATIENT
  Age: 72 Year
  Sex: Female

DRUGS (5)
  1. COUMADIN [Suspect]
     Dosage: 1 DOSAGE FORM =  TABS; 1 BOTTLE OF 90 TABLETS; TAKING SINCE ATLEAST 8DEC06
     Dates: start: 20061201
  2. VERAPAMIL [Concomitant]
  3. DIGOXIN [Concomitant]
  4. BONIVA [Concomitant]
  5. CHLORDIAZEPOXIDE [Concomitant]

REACTIONS (1)
  - INTERNATIONAL NORMALISED RATIO INCREASED [None]
